FAERS Safety Report 8484102-9 (Version None)
Quarter: 2012Q3

REPORT INFORMATION
  Report Type: 
  Country: None (occurrence: None)
  Receive Date: 20120703
  Receipt Date: 20120622
  Transmission Date: 20120928
  Serious: Yes (Hospitalization)
  Sender: FDA-Public Use
  Company Number: FR-SANOFI-AVENTIS-2012SA045055

PATIENT
  Age: 56 Year
  Sex: Male

DRUGS (5)
  1. PERINDOPRIL ERBUMINE [Suspect]
     Route: 048
     Dates: start: 20090301
  2. BISOPROLOL FUMARATE [Suspect]
     Route: 048
     Dates: start: 20090301
  3. REMICADE [Suspect]
     Route: 042
     Dates: start: 20100601, end: 20110601
  4. ATORVASTATIN [Suspect]
     Route: 048
     Dates: start: 20090301
  5. LASIX [Suspect]
     Route: 048
     Dates: start: 20090301

REACTIONS (1)
  - INTERSTITIAL LUNG DISEASE [None]
